FAERS Safety Report 19418018 (Version 1)
Quarter: 2021Q2

REPORT INFORMATION
  Report Type: Spontaneous
  Country: DE (occurrence: DE)
  Receive Date: 20210615
  Receipt Date: 20210615
  Transmission Date: 20210717
  Serious: Yes (Hospitalization)
  Sender: FDA-Public Use
  Company Number: DE-TEVA-2021-DE-1921597

PATIENT
  Age: 66 Year
  Sex: Female

DRUGS (12)
  1. ALLOPURINOL. [Concomitant]
     Active Substance: ALLOPURINOL
     Dosage: 300 MILLIGRAM DAILY;  0?0?1?0
  2. VENLAFAXIN [Suspect]
     Active Substance: VENLAFAXINE HYDROCHLORIDE
     Dosage: 150 MILLIGRAM DAILY; 0?0?1?0
  3. CANDECOR 8 MG TABLETTEN [Concomitant]
     Dosage: 16 MILLIGRAM DAILY; 1?0?1?0
  4. EDOXABAN [Suspect]
     Active Substance: EDOXABAN TOSYLATE
     Dosage: 60 MILLIGRAM DAILY;  1?0?0?0
  5. BENSERAZIDE/LEVODOPA [Concomitant]
     Active Substance: BENSERAZIDE\LEVODOPA
     Dosage: 1 DOSAGE FORMS DAILY; 25|100 MG, 0?0?1?0
  6. MIRTAZAPIN [Suspect]
     Active Substance: MIRTAZAPINE
     Dosage: 15 MILLIGRAM DAILY;  0?0?1?0
  7. LEVOTHYROXINE SODIUM. [Concomitant]
     Active Substance: LEVOTHYROXINE SODIUM
     Dosage: .112 MILLIGRAM DAILY;  1?0?0?0
  8. PREGABALIN. [Concomitant]
     Active Substance: PREGABALIN
     Dosage: 2 DOSAGE FORMS DAILY; 150 MG, 1?0?1?0
  9. METOPROLOL. [Concomitant]
     Active Substance: METOPROLOL
     Dosage: 190 MILLIGRAM DAILY;  1?0?1?0
  10. PANTOPRAZO [Concomitant]
     Dosage: 20 MILLIGRAM DAILY; 1?0?0?0
  11. EISEN(II) [Concomitant]
     Dosage: 100 MILLIGRAM DAILY;  1?0?0?0
  12. HCT AAA 25MG [Concomitant]
     Dosage: 25 MILLIGRAM DAILY;  1?0?0?0

REACTIONS (5)
  - Diarrhoea [Unknown]
  - Abdominal pain [Unknown]
  - Dyspepsia [Unknown]
  - Atrial fibrillation [Unknown]
  - Nausea [Unknown]
